FAERS Safety Report 8057892-7 (Version None)
Quarter: 2012Q1

REPORT INFORMATION
  Report Type: 
  Country: None (occurrence: None)
  Receive Date: 20120120
  Receipt Date: 20120111
  Transmission Date: 20120608
  Serious: Yes (Life-Threatening)
  Sender: FDA-Public Use
  Company Number: AU-BAXTER-2012BH001080

PATIENT
  Age: 63 Year
  Sex: Female

DRUGS (2)
  1. OXALIPLATIN [Suspect]
     Indication: COLORECTAL CANCER METASTATIC
     Route: 042
     Dates: start: 20111123
  2. DEXTROSE 5% [Suspect]
     Indication: MEDICATION DILUTION
     Route: 042
     Dates: start: 20111123

REACTIONS (3)
  - OEDEMA MOUTH [None]
  - DYSPNOEA [None]
  - LOCALISED OEDEMA [None]
